FAERS Safety Report 9478419 (Version 2)
Quarter: 2013Q3

REPORT INFORMATION
  Report Type: Report from Study
  Country: US (occurrence: US)
  Receive Date: 20130827
  Receipt Date: 20130827
  Transmission Date: 20140515
  Serious: Yes (Hospitalization)
  Sender: FDA-Public Use
  Company Number: US-SANOFI-AVENTIS-2013SA080400

PATIENT
  Sex: Female

DRUGS (3)
  1. AUBAGIO [Suspect]
     Indication: MULTIPLE SCLEROSIS
     Route: 065
  2. XANAX [Suspect]
     Route: 065
  3. ANXIOLYTICS [Concomitant]

REACTIONS (5)
  - Adverse event [Unknown]
  - Sleep disorder [Unknown]
  - Amnesia [Unknown]
  - Disturbance in attention [Unknown]
  - Drug dose omission [Unknown]
